FAERS Safety Report 10143498 (Version 1)
Quarter: 2014Q2

REPORT INFORMATION
  Report Type: Spontaneous
  Country: US (occurrence: US)
  Receive Date: 20140430
  Receipt Date: 20140430
  Transmission Date: 20141212
  Serious: No
  Sender: FDA-Public Use
  Company Number: US-PFIZER INC-2014116049

PATIENT
  Sex: Female

DRUGS (8)
  1. MORPHINE SULFATE [Suspect]
     Dosage: UNK
  2. ASPIRIN [Suspect]
     Dosage: UNK
  3. ZOFRAN [Suspect]
     Dosage: UNK
  4. CAFFEINE [Suspect]
     Dosage: UNK
  5. REGLAN [Suspect]
     Dosage: UNK
  6. VALIUM [Suspect]
     Dosage: UNK
  7. COMPAZINE [Suspect]
     Dosage: UNK
  8. DEMEROL [Suspect]
     Dosage: UNK

REACTIONS (1)
  - Drug hypersensitivity [Unknown]
